FAERS Safety Report 5881363-7 (Version None)
Quarter: 2008Q3

REPORT INFORMATION
  Report Type: 
  Country: None (occurrence: None)
  Receive Date: 20080912
  Receipt Date: 20080627
  Transmission Date: 20090109
  Serious: No
  Sender: FDA-Public Use
  Company Number: US-ABBOTT-08P-163-0459944-00

PATIENT
  Sex: Female
  Weight: 96.81 kg

DRUGS (7)
  1. HUMIRA [Suspect]
     Indication: ANKYLOSING SPONDYLITIS
     Route: 058
     Dates: start: 20080624
  2. NISOLDIPINE [Concomitant]
     Indication: BLOOD PRESSURE
     Route: 048
  3. IRBESARTAN [Concomitant]
     Indication: BLOOD PRESSURE
     Route: 048
  4. FLUOXETINE [Concomitant]
     Indication: DRUG USE FOR UNKNOWN INDICATION
     Route: 048
  5. ESTEROL [Concomitant]
     Indication: DRUG USE FOR UNKNOWN INDICATION
     Route: 048
  6. FOLIC ACID [Concomitant]
     Indication: DRUG USE FOR UNKNOWN INDICATION
     Dosage: EVERY DAY BUT WEDNESDAYS
     Route: 048
  7. METHOTREXATE [Concomitant]
     Indication: ANKYLOSING SPONDYLITIS
     Dosage: FOUR TABS ON WEDNESDAYS
     Route: 048

REACTIONS (1)
  - HEADACHE [None]
